FAERS Safety Report 10267824 (Version 1)
Quarter: 2014Q2

REPORT INFORMATION
  Report Type: Spontaneous
  Country: US (occurrence: US)
  Receive Date: 20140630
  Receipt Date: 20140630
  Transmission Date: 20141212
  Serious: No
  Sender: FDA-Public Use
  Company Number: US-GLAXOSMITHKLINE-A1054310A

PATIENT
  Sex: Male

DRUGS (4)
  1. RANITIDINE [Suspect]
     Indication: GASTROOESOPHAGEAL REFLUX DISEASE
     Dosage: 150U TWICE PER DAY
     Route: 048
  2. ZANTAC OTC [Suspect]
     Indication: GASTROOESOPHAGEAL REFLUX DISEASE
     Dosage: 150U TWICE PER DAY
  3. TOPROL [Concomitant]
  4. UNKNOWN MEDICATION [Concomitant]

REACTIONS (1)
  - Drug effect decreased [Unknown]
